FAERS Safety Report 23144433 (Version 3)
Quarter: 2023Q4

REPORT INFORMATION
  Report Type: Report from Study
  Country: IN (occurrence: None)
  Receive Date: 20231103
  Receipt Date: 20231201
  Transmission Date: 20240110
  Serious: Yes (Life-Threatening, Hospitalization, Other)
  Sender: FDA-Public Use
  Company Number: 2023A246373

PATIENT
  Age: 75 Year
  Sex: Male
  Weight: 62 kg

DRUGS (11)
  1. DATOPOTAMAB DERUXTECAN [Suspect]
     Active Substance: DATOPOTAMAB DERUXTECAN
     Indication: Non-small cell lung cancer
     Route: 042
     Dates: start: 20230824, end: 20231006
  2. DATOPOTAMAB DERUXTECAN [Suspect]
     Active Substance: DATOPOTAMAB DERUXTECAN
     Indication: Non-small cell lung cancer
     Route: 042
     Dates: start: 20231106, end: 20231128
  3. DURVALUMAB [Suspect]
     Active Substance: DURVALUMAB
     Indication: Non-small cell lung cancer
     Route: 042
     Dates: start: 20230824, end: 20231006
  4. DURVALUMAB [Suspect]
     Active Substance: DURVALUMAB
     Indication: Non-small cell lung cancer
     Route: 042
     Dates: start: 20231106, end: 20231128
  5. CARBOPLATIN [Suspect]
     Active Substance: CARBOPLATIN
     Indication: Non-small cell lung cancer
     Dosage: 5.0 AUC
     Route: 042
     Dates: start: 20230824, end: 20231006
  6. PANTOCID [Concomitant]
     Route: 048
     Dates: start: 20230823
  7. DOMSTAL [Concomitant]
     Route: 048
     Dates: start: 20230825
  8. ULTRANISE [Concomitant]
     Route: 048
     Dates: start: 20230825
  9. BEPLEX FORTE [Concomitant]
     Route: 048
     Dates: start: 20230825
  10. FOLVIT [Concomitant]
     Route: 048
     Dates: start: 20230825
  11. CARBOXYMETHYLCELLULOSE EYE DROPS [Concomitant]
     Dosage: 1 DROP
     Route: 047
     Dates: start: 20230825

REACTIONS (2)
  - Anaemia [Recovered/Resolved]
  - Thrombocytopenia [Recovered/Resolved]

NARRATIVE: CASE EVENT DATE: 20231027
